FAERS Safety Report 6949377-3 (Version None)
Quarter: 2010Q3

REPORT INFORMATION
  Report Type: 
  Country: None (occurrence: None)
  Receive Date: 20100828
  Receipt Date: 20091218
  Transmission Date: 20110219
  Serious: No
  Sender: FDA-Public Use
  Company Number: US-ABBOTT-09P-163-0616240-00

PATIENT
  Sex: Female
  Weight: 75.818 kg

DRUGS (7)
  1. NIASPAN [Suspect]
     Indication: BLOOD CHOLESTEROL INCREASED
     Route: 048
     Dates: start: 20091101
  2. METFORMIN [Concomitant]
     Indication: DIABETES MELLITUS
     Dates: start: 20070101
  3. LOVAZA [Concomitant]
     Indication: BLOOD CHOLESTEROL INCREASED
     Dates: start: 20080101
  4. VITAMIN D [Concomitant]
     Indication: PRODUCT USED FOR UNKNOWN INDICATION
     Dates: start: 20091214
  5. MULTI-VITAMIN [Concomitant]
     Indication: VITAMIN SUPPLEMENTATION
  6. CALTRATE [Concomitant]
     Indication: OSTEOPOROSIS PROPHYLAXIS
  7. ASPIRIN [Concomitant]
     Indication: PROPHYLAXIS
     Dosage: ONE DAILY, 30 MIN BEFORE NIASPAN
     Route: 048

REACTIONS (4)
  - BURNING SENSATION [None]
  - FEELING HOT [None]
  - PARAESTHESIA [None]
  - RASH [None]
